FAERS Safety Report 14479520 (Version 6)
Quarter: 2022Q2

REPORT INFORMATION
  Report Type: Spontaneous
  Country: ES (occurrence: ES)
  Receive Date: 20180202
  Receipt Date: 20220512
  Transmission Date: 20220721
  Serious: Yes (Death, Hospitalization, Other)
  Sender: FDA-Public Use
  Company Number: ES-AGEMED-905447238

PATIENT
  Age: 72 Year
  Sex: Female

DRUGS (11)
  1. ALPRAZOLAM [Interacting]
     Active Substance: ALPRAZOLAM
     Indication: Product used for unknown indication
     Dosage: 1 MILLIGRAM, ONCE A DAY
     Route: 048
     Dates: start: 201404
  2. MIRTAZAPINE [Suspect]
     Active Substance: MIRTAZAPINE
     Indication: Depression
     Dosage: UNK
     Route: 048
  3. FLUOXETINE [Suspect]
     Active Substance: FLUOXETINE HYDROCHLORIDE
     Indication: Depression
     Dosage: UNK
     Route: 065
  4. BRINTELLIX [Interacting]
     Active Substance: VORTIOXETINE HYDROBROMIDE
     Indication: Depression
     Dosage: 5 MILLIGRAM, ONCE A DAY
     Route: 048
     Dates: start: 20160310, end: 20160402
  5. BRINTELLIX [Interacting]
     Active Substance: VORTIOXETINE HYDROBROMIDE
     Dosage: 10 MILLIGRAM, ONCE A DAY
     Route: 065
  6. LUDIOMIL [Interacting]
     Active Substance: MAPROTILINE HYDROCHLORIDE
     Indication: Depression
     Dosage: 37.5 MILLIGRAM
     Route: 065
  7. LUDIOMIL [Interacting]
     Active Substance: MAPROTILINE HYDROCHLORIDE
     Dosage: 18.75 MG, TWO TIMES A DAY
     Route: 048
     Dates: start: 201404
  8. LUDIOMIL [Interacting]
     Active Substance: MAPROTILINE HYDROCHLORIDE
     Dosage: 75 MILLIGRAM,(1/2-0-1/2)
     Route: 065
     Dates: start: 201404, end: 201404
  9. ASENAPINE MALEATE [Suspect]
     Active Substance: ASENAPINE MALEATE
     Indication: Depression
     Dosage: UNK
     Route: 048
  10. AMITRIPTYLINE [Suspect]
     Active Substance: AMITRIPTYLINE
     Indication: Depression
     Dosage: UNK,(1/2-1/2-1)
     Route: 048
     Dates: start: 201404
  11. AMITRIPTYLINE [Suspect]
     Active Substance: AMITRIPTYLINE
     Dosage: UNK
     Route: 065

REACTIONS (9)
  - Cerebrovascular accident [Fatal]
  - Aspiration [Fatal]
  - Hyponatraemia [Fatal]
  - Polydipsia [Fatal]
  - Cardiac arrest [Fatal]
  - Embolic stroke [Fatal]
  - Seizure [Fatal]
  - Respiration abnormal [Fatal]
  - Depressed level of consciousness [Fatal]

NARRATIVE: CASE EVENT DATE: 20160401
